FAERS Safety Report 5112878-7 (Version None)
Quarter: 2006Q3

REPORT INFORMATION
  Report Type: 
  Country: None (occurrence: None)
  Receive Date: 20060919
  Receipt Date: 20060919
  Transmission Date: 20061208
  Serious: Yes (Hospitalization)
  Sender: FDA-Public Use
  Company Number: None

PATIENT
  Sex: Male
  Weight: 88.7 kg

DRUGS (9)
  1. DOXORUBICIN HYDROCHLORIDE [Suspect]
     Dosage: 42 MG
  2. ESTRAMUSTINE [Suspect]
     Dosage: 420 MG
  3. KETOCONAZOLE (NIZORAL) [Concomitant]
     Dosage: 1200 MG
  4. VINBLASTINE SULFATE [Suspect]
     Dosage: 8.4 MG
  5. ALTACE [Concomitant]
  6. COUMADIN [Concomitant]
  7. CREATPR [Concomitant]
  8. HYDROCHLOROTHIAZDE TAB [Concomitant]
  9. NAPROXEN [Concomitant]

REACTIONS (3)
  - GASTRITIS [None]
  - GASTROINTESTINAL DISORDER [None]
  - LEUKOPENIA [None]
